FAERS Safety Report 4791675-6 (Version None)
Quarter: 2005Q4

REPORT INFORMATION
  Report Type: 
  Country: None (occurrence: None)
  Receive Date: 20051007
  Receipt Date: 20020227
  Transmission Date: 20060501
  Serious: Yes (Hospitalization)
  Sender: FDA-Public Use
  Company Number: US-GLAXOSMITHKLINE-A0360853A

PATIENT
  Age: 43 Year
  Sex: Female

DRUGS (7)
  1. LOTRONEX [Suspect]
     Indication: FIBROMYALGIA
     Route: 048
     Dates: start: 20000526, end: 20000620
  2. ESTROGEN PATCH [Concomitant]
  3. ESTRACE [Concomitant]
  4. CLARITIN [Concomitant]
  5. CYCLOBENZAPRINE HCL [Concomitant]
  6. LUVOX [Concomitant]
  7. TRAZODONE [Concomitant]

REACTIONS (6)
  - ABDOMINAL PAIN [None]
  - CONSTIPATION [None]
  - MELANOSIS COLI [None]
  - POLLAKIURIA [None]
  - RECTAL PROLAPSE [None]
  - RECTOCELE [None]
